FAERS Safety Report 11987665 (Version 1)
Quarter: 2016Q1

REPORT INFORMATION
  Report Type: Spontaneous
  Country: US (occurrence: None)
  Receive Date: 20160201
  Receipt Date: 20160201
  Transmission Date: 20160526
  Serious: Yes (Other)
  Sender: FDA-Public Use
  Company Number: None

PATIENT
  Age: 67 Year
  Sex: Male
  Weight: 101.61 kg

DRUGS (5)
  1. SUTENT [Suspect]
     Active Substance: SUNITINIB MALATE
     Indication: RENAL CANCER
     Dosage: 2 PILLS, AT SAME TIME, TAKEN BY MOUTH
     Dates: start: 20160107, end: 20160126
  2. SIMVASTATIN. [Concomitant]
     Active Substance: SIMVASTATIN
  3. B3 [Concomitant]
  4. FISH OIL [Concomitant]
     Active Substance: FISH OIL
  5. ASPIRIN. [Concomitant]
     Active Substance: ASPIRIN

REACTIONS (9)
  - Fatigue [None]
  - Hepatic function abnormal [None]
  - Confusional state [None]
  - Blood pressure increased [None]
  - Hypersomnia [None]
  - Amnesia [None]
  - Diarrhoea [None]
  - Retching [None]
  - Renal impairment [None]

NARRATIVE: CASE EVENT DATE: 20160128
